FAERS Safety Report 9935168 (Version 3)
Quarter: 2014Q2

REPORT INFORMATION
  Report Type: Spontaneous
  Country: JP (occurrence: JP)
  Receive Date: 20140228
  Receipt Date: 20140416
  Transmission Date: 20141212
  Serious: Yes (Other)
  Sender: FDA-Public Use
  Company Number: JP-JNJFOC-20140210815

PATIENT
  Sex: 0

DRUGS (8)
  1. HALOPERIDOL [Suspect]
     Indication: DELIRIUM
     Route: 042
  2. RISPERIDONE [Suspect]
     Indication: DELIRIUM
     Route: 065
  3. QUETIAPINE [Suspect]
     Indication: DELIRIUM
     Route: 065
  4. PEROSPIRONE [Suspect]
     Indication: DELIRIUM
     Route: 065
  5. OLANZAPINE [Suspect]
     Indication: DELIRIUM
     Route: 065
  6. ARIPIPRAZOLE [Suspect]
     Indication: DELIRIUM
     Route: 065
  7. BLONANSERIN [Suspect]
     Indication: DELIRIUM
     Route: 065
  8. TIAPRIDE [Suspect]
     Indication: DELIRIUM
     Route: 065

REACTIONS (10)
  - Adverse event [Unknown]
  - Blood pressure systolic decreased [Unknown]
  - Pneumonia aspiration [Unknown]
  - Embolism venous [Unknown]
  - Extrapyramidal disorder [Unknown]
  - Bradycardia [Unknown]
  - Ventricular tachycardia [Unknown]
  - Inappropriate schedule of drug administration [Unknown]
  - Off label use [Unknown]
  - Wrong technique in drug usage process [Unknown]
